FAERS Safety Report 12347624 (Version 1)
Quarter: 2016Q2

REPORT INFORMATION
  Report Type: Spontaneous
  Country: BR (occurrence: BR)
  Receive Date: 20160509
  Receipt Date: 20160509
  Transmission Date: 20160815
  Serious: Yes (Life-Threatening, Hospitalization, Other)
  Sender: FDA-Public Use
  Company Number: BR-WATSON-2016-09273

PATIENT
  Age: 60 Year
  Sex: Male

DRUGS (3)
  1. CLOZAPINE (UNKNOWN) [Suspect]
     Active Substance: CLOZAPINE
     Dosage: INCREASING BY 25 MG EVERY TWO DAYS AND 4 DAYS LATER THE PATIENT TOOK 125MG OF CLOZAPINE
     Route: 065
  2. VALPROIC ACID. [Concomitant]
     Active Substance: VALPROIC ACID
     Indication: SCHIZOPHRENIA
     Dosage: 1000 MG, DAILY
     Route: 065
     Dates: end: 201401
  3. CLOZAPINE (UNKNOWN) [Suspect]
     Active Substance: CLOZAPINE
     Indication: SCHIZOPHRENIA
     Dosage: 600 MG, DAILY
     Route: 065
     Dates: end: 201401

REACTIONS (1)
  - Heat stroke [Recovering/Resolving]
